FAERS Safety Report 7603713-3 (Version None)
Quarter: 2011Q3

REPORT INFORMATION
  Report Type: 
  Country: None (occurrence: None)
  Receive Date: 20110712
  Receipt Date: 20110627
  Transmission Date: 20111222
  Serious: Yes (Other)
  Sender: FDA-Public Use
  Company Number: BR-GENENTECH-308889

PATIENT
  Sex: Female
  Weight: 65 kg

DRUGS (12)
  1. OSCAL [Concomitant]
     Indication: OSTEOPENIA
     Dosage: 500 MG, UNK
  2. DEFLAZACORT [Concomitant]
     Indication: PRODUCT USED FOR UNKNOWN INDICATION
     Dosage: 6 MG, UNK
  3. TOFRANIL [Concomitant]
     Indication: PRODUCT USED FOR UNKNOWN INDICATION
     Dosage: 25 MG, UNK
  4. TOCILIZUMAB [Suspect]
     Indication: RHEUMATOID ARTHRITIS
     Dosage: 8 MG/KG, UNK
     Route: 042
     Dates: start: 20100706, end: 20100701
  5. METHOTREXATE [Concomitant]
     Indication: PRODUCT USED FOR UNKNOWN INDICATION
     Dosage: 15 MG, UNK
     Dates: end: 20100101
  6. CLONAZEPAM [Concomitant]
     Indication: PRODUCT USED FOR UNKNOWN INDICATION
     Dosage: .2 MG, UNK
  7. RITUXIMAB [Suspect]
     Indication: RHEUMATOID ARTHRITIS
     Dosage: 1000 MG, UNK
     Route: 065
     Dates: start: 20101001, end: 20101015
  8. CYMBALTA [Concomitant]
     Indication: PRODUCT USED FOR UNKNOWN INDICATION
     Dosage: 60 MG, UNK
  9. MELOXICAM [Concomitant]
     Indication: PRODUCT USED FOR UNKNOWN INDICATION
     Dosage: 7.5 MG, UNK
  10. METHOTREXATE [Concomitant]
     Dosage: 15 MG, 1/WEEK
  11. NAPROXEN [Concomitant]
     Indication: PRODUCT USED FOR UNKNOWN INDICATION
     Dosage: 500 MG, UNK
  12. OMEPRAZOLE [Concomitant]
     Indication: PRODUCT USED FOR UNKNOWN INDICATION
     Dosage: 40 MG, UNK

REACTIONS (22)
  - EPISTAXIS [None]
  - SINUSITIS [None]
  - RENAL COLIC [None]
  - PROCEDURAL PAIN [None]
  - BLOOD CHOLESTEROL INCREASED [None]
  - HYPERTENSION [None]
  - SKIN DISCOLOURATION [None]
  - PAIN IN EXTREMITY [None]
  - FEELING HOT [None]
  - THERAPEUTIC RESPONSE DECREASED [None]
  - INFLAMMATION [None]
  - BLOOD TRIGLYCERIDES INCREASED [None]
  - ANAEMIA [None]
  - NASOPHARYNGITIS [None]
  - CATARACT [None]
  - DRUG INEFFECTIVE [None]
  - HEADACHE [None]
  - UPPER EXTREMITY MASS [None]
  - SOMNOLENCE [None]
  - CARPAL TUNNEL SYNDROME [None]
  - ULCER [None]
  - TENDONITIS [None]
